FAERS Safety Report 22359513 (Version 1)
Quarter: 2023Q2

REPORT INFORMATION
  Report Type: Spontaneous
  Country: US (occurrence: US)
  Receive Date: 20230524
  Receipt Date: 20230524
  Transmission Date: 20230721
  Serious: No
  Sender: FDA-Public Use
  Company Number: US-ABBVIE-4773059

PATIENT
  Age: 26 Year
  Sex: Female
  Weight: 77.11 kg

DRUGS (7)
  1. HUMIRA [Suspect]
     Active Substance: ADALIMUMAB
     Indication: Crohn^s disease
     Dosage: FORM STRENGTH:80 MILLIGRAM
     Route: 058
     Dates: start: 20230505
  2. FISH OIL [Concomitant]
     Active Substance: FISH OIL
     Indication: Supplementation therapy
  3. BIOTIN [Concomitant]
     Active Substance: BIOTIN
     Indication: Supplementation therapy
  4. DULOXETINE [Concomitant]
     Active Substance: DULOXETINE
     Indication: Anxiety
  5. VITAMIN B12 [Concomitant]
     Active Substance: CYANOCOBALAMIN
     Indication: Supplementation therapy
  6. IRON [Concomitant]
     Active Substance: IRON
     Indication: Supplementation therapy
  7. VITAMIN D [Concomitant]
     Active Substance: VITAMIN D NOS
     Indication: Supplementation therapy

REACTIONS (2)
  - Injection site haemorrhage [Recovered/Resolved]
  - Wrong technique in product usage process [Not Recovered/Not Resolved]

NARRATIVE: CASE EVENT DATE: 20230518
